FAERS Safety Report 6317568 (Version 2)
Quarter: 2020Q1

REPORT INFORMATION
  Report Type: Spontaneous
  Country: GB (occurrence: GB)
  Receive Date: 20070504
  Receipt Date: 20200214
  Transmission Date: 20200409
  Serious: Yes (Congenital Anomaly)
  Sender: FDA-Public Use
  Company Number: GXKR2007GB03753

PATIENT
  Age: 2 Year
  Sex: Male
  Weight: 3.5 kg

DRUGS (1)
  1. SERTRALINE [Suspect]
     Active Substance: SERTRALINE HYDROCHLORIDE
     Indication: PRODUCT USED FOR UNKNOWN INDICATION
     Dosage: 50 MG, QD (THROUGHOUT PREGNANCY)
     Route: 064

REACTIONS (3)
  - Exposure during pregnancy [Unknown]
  - Limb deformity [Unknown]
  - Limb malformation [Not Recovered/Not Resolved]
